FAERS Safety Report 12077153 (Version 1)
Quarter: 2016Q1

REPORT INFORMATION
  Report Type: Spontaneous
  Country: US (occurrence: US)
  Receive Date: 20160215
  Receipt Date: 20160215
  Transmission Date: 20160526
  Serious: Yes (Hospitalization, Other)
  Sender: FDA-Public Use
  Company Number: US-GLAXOSMITHKLINE-US2016020066

PATIENT
  Age: 85 Year
  Sex: Female

DRUGS (1)
  1. ADVAIR DISKUS [Suspect]
     Active Substance: FLUTICASONE PROPIONATE\SALMETEROL XINAFOATE
     Indication: ASTHMA
     Dosage: 1 PUFF(S), 1D IN THE MORNING
     Route: 055

REACTIONS (5)
  - Device use error [Recovered/Resolved]
  - Underdose [Not Recovered/Not Resolved]
  - Blood pressure decreased [Recovering/Resolving]
  - Fall [Recovered/Resolved]
  - Cardiac operation [Recovering/Resolving]

NARRATIVE: CASE EVENT DATE: 2012
